FAERS Safety Report 18596785 (Version 1)
Quarter: 2020Q4

REPORT INFORMATION
  Report Type: Spontaneous
  Country: BR (occurrence: BR)
  Receive Date: 20201209
  Receipt Date: 20201209
  Transmission Date: 20210114
  Serious: Yes (Other)
  Sender: FDA-Public Use
  Company Number: NVSC2020BR326647

PATIENT
  Sex: Female

DRUGS (1)
  1. DIOVAN HCT [Suspect]
     Active Substance: HYDROCHLOROTHIAZIDE\VALSARTAN
     Indication: HYPERTENSION
     Dosage: (STARTED ROM JULY OF LAST YEAR, ENDED YESTERDAY)
     Route: 065

REACTIONS (6)
  - Drug dependence [Unknown]
  - Hypertension [Unknown]
  - Dizziness [Unknown]
  - Product dose omission issue [Not Recovered/Not Resolved]
  - Boredom [Unknown]
  - Product availability issue [Not Recovered/Not Resolved]
